FAERS Safety Report 6521610-1 (Version None)
Quarter: 2009Q4

REPORT INFORMATION
  Report Type: 
  Country: None (occurrence: None)
  Receive Date: 20091230
  Receipt Date: 20091217
  Transmission Date: 20100525
  Serious: Yes (Hospitalization)
  Sender: FDA-Public Use
  Company Number: PHHY2009CA47470

PATIENT
  Sex: Female

DRUGS (4)
  1. CLOZARIL [Suspect]
     Indication: SCHIZOPHRENIA, PARANOID TYPE
     Dosage: 450 MG, UNK
     Route: 048
     Dates: start: 20061004
  2. EFFEXOR XR [Concomitant]
     Dosage: 225 MG, QD
  3. SEROQUEL [Concomitant]
     Dosage: 300 MG Q 6 PRN AND 250 MG QHS
  4. LANSOPRAZOLE [Concomitant]
     Dosage: 3 MG, QD

REACTIONS (1)
  - H1N1 INFLUENZA [None]
